FAERS Safety Report 8707483 (Version 2)
Quarter: 2013Q4

REPORT INFORMATION
  Report Type: Spontaneous
  Country: US (occurrence: US)
  Receive Date: 20120804
  Receipt Date: 20131101
  Transmission Date: 20140711
  Serious: No
  Sender: FDA-Public Use
  Company Number: US-009507513-1207USA009815

PATIENT
  Age: 50 Year
  Sex: Male

DRUGS (1)
  1. ZOCOR [Suspect]
     Dosage: 10 MG, UNK
     Route: 048

REACTIONS (3)
  - Pain in extremity [Unknown]
  - Muscular weakness [Unknown]
  - Mobility decreased [Unknown]
